FAERS Safety Report 6216537 (Version 2)
Quarter: 2013Q4

REPORT INFORMATION
  Report Type: Report from Study
  Country: US (occurrence: US)
  Receive Date: 20070117
  Receipt Date: 20131122
  Transmission Date: 20140711
  Serious: Yes (Other)
  Sender: FDA-Public Use
  Company Number: PHEH2007US00723

PATIENT
  Sex: 0

DRUGS (1)
  1. TEGRETOL [Suspect]
     Dosage: UNK UKN, UNK
     Route: 064

REACTIONS (2)
  - Autism [Unknown]
  - Foetal exposure during pregnancy [Unknown]
